FAERS Safety Report 9699886 (Version 2)
Quarter: 2013Q4

REPORT INFORMATION
  Report Type: Report from Study
  Country: US (occurrence: US)
  Receive Date: 20131121
  Receipt Date: 20131212
  Transmission Date: 20140711
  Serious: Yes (Death)
  Sender: FDA-Public Use
  Company Number: US-ROCHE-1306855

PATIENT
  Age: 38 Year
  Sex: Male

DRUGS (18)
  1. AVASTIN [Suspect]
     Indication: NEUROENDOCRINE CARCINOMA
     Route: 065
     Dates: start: 201103
  2. AVASTIN [Suspect]
     Indication: PANCREATIC CARCINOMA
     Route: 065
     Dates: start: 20130612
  3. AVASTIN [Suspect]
     Route: 065
     Dates: start: 20130626
  4. AVASTIN [Suspect]
     Route: 065
     Dates: start: 20130113
  5. AVASTIN [Suspect]
     Route: 065
     Dates: start: 20130228
  6. AVASTIN [Suspect]
     Route: 065
     Dates: start: 20130325
  7. AVASTIN [Suspect]
     Route: 065
     Dates: start: 20130513
  8. AVASTIN [Suspect]
     Route: 065
     Dates: start: 20130529
  9. XELODA [Suspect]
     Indication: PRODUCT USED FOR UNKNOWN INDICATION
     Route: 065
  10. LOSARTAN [Concomitant]
     Indication: BLOOD PRESSURE
  11. COUMADIN [Concomitant]
     Indication: THROMBOSIS
  12. ZOFRAN [Concomitant]
  13. IBUPROFEN [Concomitant]
     Indication: PAIN
  14. LASIX [Concomitant]
  15. SPIRONOLACTONE [Concomitant]
  16. TEMODAR [Concomitant]
     Indication: NEOPLASM MALIGNANT
  17. ZOMETA [Concomitant]
  18. SIMVASTATIN [Concomitant]

REACTIONS (1)
  - Death [Fatal]
